FAERS Safety Report 18009199 (Version 2)
Quarter: 2021Q3

REPORT INFORMATION
  Report Type: Report from Study
  Country: US (occurrence: US)
  Receive Date: 20200710
  Receipt Date: 20210806
  Transmission Date: 20211014
  Serious: No
  Sender: FDA-Public Use
  Company Number: US-SAOL THERAPEUTICS-2020SAO00073

PATIENT
  Sex: Male
  Weight: 74.83 kg

DRUGS (2)
  1. LIORESAL [Suspect]
     Active Substance: BACLOFEN
     Dosage: 186.69728 ?G, \DAY
     Route: 037
  2. LIORESAL [Suspect]
     Active Substance: BACLOFEN
     Dosage: 169.78629  ?G, \DAY
     Route: 037

REACTIONS (2)
  - Device dislocation [Recovered/Resolved]
  - Muscle spasms [Recovered/Resolved]
